FAERS Safety Report 16769418 (Version 1)
Quarter: 2019Q3

REPORT INFORMATION
  Report Type: Spontaneous
  Country: US (occurrence: US)
  Receive Date: 20190903
  Receipt Date: 20190903
  Transmission Date: 20191005
  Serious: Yes (Hospitalization)
  Sender: FDA-Public Use
  Company Number: US-ALNYLAM PHARMACEUTICALS, INC.-ALN-2019-000670

PATIENT
  Age: 49 Year
  Sex: Female

DRUGS (1)
  1. ONPATTRO [Suspect]
     Active Substance: PATISIRAN SODIUM
     Indication: HEREDITARY NEUROPATHIC AMYLOIDOSIS
     Dosage: UNK
     Route: 042
     Dates: start: 20170322

REACTIONS (4)
  - Blood pressure abnormal [Unknown]
  - Fatigue [Unknown]
  - Dry mouth [Unknown]
  - Hypertension [Unknown]

NARRATIVE: CASE EVENT DATE: 20190729
